FAERS Safety Report 9541842 (Version 2)
Quarter: 2013Q4

REPORT INFORMATION
  Report Type: Spontaneous
  Country: GB (occurrence: GB)
  Receive Date: 20130923
  Receipt Date: 20131126
  Transmission Date: 20140711
  Serious: Yes (Other)
  Sender: FDA-Public Use
  Company Number: PHFR2013GB005373

PATIENT
  Age: 36 Year
  Sex: Male

DRUGS (1)
  1. CLOZARIL [Suspect]
     Dosage: UNK
     Route: 048
     Dates: start: 20121012, end: 20130829

REACTIONS (4)
  - Cardiac disorder [Unknown]
  - Electrocardiogram QT prolonged [Unknown]
  - Blood test abnormal [Unknown]
  - Weight increased [Unknown]
